FAERS Safety Report 8228173-3 (Version None)
Quarter: 2012Q1

REPORT INFORMATION
  Report Type: 
  Country: None (occurrence: None)
  Receive Date: 20120322
  Receipt Date: 20111209
  Transmission Date: 20120608
  Serious: No
  Sender: FDA-Public Use
  Company Number: US-BRISTOL-MYERS SQUIBB COMPANY-16283194

PATIENT
  Age: 48 Year
  Sex: Male
  Weight: 98 kg

DRUGS (5)
  1. LEXAPRO [Concomitant]
  2. TESTOSTERONE [Concomitant]
     Dosage: TESTOSTERONE INJECTIONS
  3. LASIX [Concomitant]
  4. ERBITUX [Suspect]
     Indication: COLON CANCER
     Dates: start: 20111101
  5. VITAMIN B COMPLEX CAP [Concomitant]

REACTIONS (1)
  - RASH PRURITIC [None]
